FAERS Safety Report 8174082-8 (Version None)
Quarter: 2012Q1

REPORT INFORMATION
  Report Type: 
  Country: None (occurrence: None)
  Receive Date: 20120227
  Receipt Date: 20120214
  Transmission Date: 20120608
  Serious: Yes (Hospitalization)
  Sender: FDA-Public Use
  Company Number: DSU-2012-01153

PATIENT
  Age: 83 Year
  Sex: Female
  Weight: 69.8539 kg

DRUGS (4)
  1. BENICAR [Suspect]
     Indication: HYPERTENSION
     Dosage: 20 MG (20 MG, QD), PER ORAL, 40 MG (40 MG, QD), PER ORAL, 80 MG (40 MG, BID), PER ORAL
     Route: 048
     Dates: start: 20080101
  2. BENICAR [Suspect]
     Indication: HYPERTENSION
     Dosage: 20 MG (20 MG, QD), PER ORAL, 40 MG (40 MG, QD), PER ORAL, 80 MG (40 MG, BID), PER ORAL
     Route: 048
     Dates: start: 20120101, end: 20120210
  3. BENICAR [Suspect]
     Indication: HYPERTENSION
     Dosage: 20 MG (20 MG, QD), PER ORAL, 40 MG (40 MG, QD), PER ORAL, 80 MG (40 MG, BID), PER ORAL
     Route: 048
     Dates: end: 20120101
  4. REMICADE [Concomitant]

REACTIONS (7)
  - CARDIAC MURMUR [None]
  - ATRIAL FIBRILLATION [None]
  - GALLBLADDER OPERATION [None]
  - VENTRICULAR EXTRASYSTOLES [None]
  - BLOOD PRESSURE INCREASED [None]
  - WEIGHT DECREASED [None]
  - ATRIAL FLUTTER [None]
